FAERS Safety Report 6040167-5 (Version None)
Quarter: 2009Q1

REPORT INFORMATION
  Report Type: 
  Country: None (occurrence: None)
  Receive Date: 20090116
  Receipt Date: 20080103
  Transmission Date: 20090719
  Serious: No
  Sender: FDA-Public Use
  Company Number: US-BRISTOL-MYERS SQUIBB COMPANY-14029706

PATIENT
  Age: 22 Year
  Sex: Male
  Weight: 73 kg

DRUGS (1)
  1. ABILIFY [Suspect]
     Indication: SCHIZOPHRENIA, PARANOID TYPE

REACTIONS (2)
  - HEADACHE [None]
  - MUSCLE TWITCHING [None]
